FAERS Safety Report 9862007 (Version 3)
Quarter: 2020Q2

REPORT INFORMATION
  Report Type: Spontaneous
  Country: DK (occurrence: DK)
  Receive Date: 20140203
  Receipt Date: 20200417
  Transmission Date: 20200714
  Serious: Yes (Life-Threatening, Hospitalization, Other)
  Sender: FDA-Public Use
  Company Number: DK-JNJFOC-20140115167

PATIENT
  Age: 36 Year
  Sex: Female

DRUGS (3)
  1. IBUMETIN [Suspect]
     Active Substance: IBUPROFEN
     Indication: POST-TRAUMATIC NECK SYNDROME
     Dosage: LAST DOSE OF DRUG TO START OF FIRST REACTION: 4072 DAYS
     Route: 048
     Dates: start: 20020917, end: 20131110
  2. MICROGYN [Suspect]
     Active Substance: ETHINYL ESTRADIOL\LEVONORGESTREL
     Indication: CONTRACEPTION
     Dosage: CUMILATIVE DOSE TO FIRST REACTION WAS 7329675
     Route: 048
     Dates: start: 20130612, end: 20131110
  3. NORGESTIMATE/ETHINYL ESTRADIOL [Suspect]
     Active Substance: ETHINYL ESTRADIOL\NORGESTIMATE
     Indication: CONTRACEPTION
     Dosage: STRENGTH: 250 + 35 MICROGRAMS. PAUSE EVERY 4 WEEK
     Route: 048
     Dates: start: 1993, end: 20130611

REACTIONS (1)
  - Cerebral infarction [Recovering/Resolving]

NARRATIVE: CASE EVENT DATE: 20131110
